FAERS Safety Report 9557313 (Version 2)
Quarter: 2014Q2

REPORT INFORMATION
  Report Type: Report from Study
  Country: CA (occurrence: CA)
  Receive Date: 20130926
  Receipt Date: 20140521
  Transmission Date: 20141212
  Serious: Yes (Other)
  Sender: FDA-Public Use
  Company Number: CA-JNJFOC-20130912108

PATIENT
  Age: 26 Year
  Sex: Female
  Weight: 74 kg

DRUGS (6)
  1. REMICADE [Suspect]
     Indication: CROHN^S DISEASE
     Route: 042
     Dates: start: 20130725
  2. REMICADE [Suspect]
     Indication: CROHN^S DISEASE
     Route: 042
     Dates: start: 20120402
  3. IMURAN [Suspect]
     Indication: CROHN^S DISEASE
     Route: 048
     Dates: start: 20120103
  4. ASACOL [Suspect]
     Indication: CROHN^S DISEASE
     Route: 048
     Dates: start: 20120103
  5. CALCIUM [Concomitant]
     Route: 048
     Dates: start: 20120301
  6. VITAMIN D [Concomitant]
     Route: 042
     Dates: start: 20120301

REACTIONS (3)
  - Exposure during pregnancy [Recovered/Resolved]
  - Abortion spontaneous [Recovered/Resolved]
  - Crohn^s disease [Unknown]
